FAERS Safety Report 23810836 (Version 1)
Quarter: 2024Q2

REPORT INFORMATION
  Report Type: Spontaneous
  Country: JP (occurrence: None)
  Receive Date: 20240502
  Receipt Date: 20240502
  Transmission Date: 20240716
  Serious: Yes (Other)
  Sender: FDA-Public Use
  Company Number: 2024A085323

PATIENT
  Age: 80 Year
  Sex: Female
  Weight: 65 kg

DRUGS (7)
  1. BREZTRI [Suspect]
     Active Substance: BUDESONIDE\FORMOTEROL\GLYCOPYRROLATE
     Indication: Bronchitis chronic
     Dosage: DOSE UNKNOWN ; BUDESONIDE:160?G;GLYCOPYRRONIUM BROMIDE:9.0?G;FORMOTEROL FUMARATE HYDRATE:5.0?G
     Route: 055
     Dates: start: 20240401, end: 20240404
  2. BREZTRI [Suspect]
     Active Substance: BUDESONIDE\FORMOTEROL\GLYCOPYRROLATE
     Indication: Chronic obstructive pulmonary disease
     Dosage: DOSE UNKNOWN ; BUDESONIDE:160?G;GLYCOPYRRONIUM BROMIDE:9.0?G;FORMOTEROL FUMARATE HYDRATE:5.0?G
     Route: 055
     Dates: start: 20240401, end: 20240404
  3. HEMOPORISON [Concomitant]
     Route: 003
  4. MIRABEGRON [Concomitant]
     Active Substance: MIRABEGRON
     Route: 048
  5. CILNIDIPINE [Concomitant]
     Active Substance: CILNIDIPINE
     Route: 048
     Dates: start: 20230512
  6. OLMESARTAN MEDOXOMIL [Concomitant]
     Active Substance: OLMESARTAN MEDOXOMIL
     Route: 048
     Dates: start: 20230512
  7. POSTERISAN [Concomitant]
     Dates: start: 20230512

REACTIONS (3)
  - Convulsions local [Recovered/Resolved]
  - Facial spasm [Recovering/Resolving]
  - Hot flush [Unknown]

NARRATIVE: CASE EVENT DATE: 20240404
